FAERS Safety Report 12461047 (Version 1)
Quarter: 2016Q2

REPORT INFORMATION
  Report Type: Spontaneous
  Country: US (occurrence: US)
  Receive Date: 20160613
  Receipt Date: 20160613
  Transmission Date: 20160815
  Serious: Yes (Other)
  Sender: FDA-Public Use
  Company Number: US-BAYER-2016-108775

PATIENT
  Age: 60 Year
  Sex: Female
  Weight: 59 kg

DRUGS (3)
  1. BAYER GENUINE ASPIRIN [Suspect]
     Active Substance: ASPIRIN
  2. PHILLIPS^ COLON HEALTH [Suspect]
     Active Substance: PROBIOTICS NOS
     Indication: LAXATIVE SUPPORTIVE CARE
     Dosage: 1 DF, ONCE
     Dates: start: 20160527, end: 20160527
  3. SYNTHROID [Concomitant]
     Active Substance: LEVOTHYROXINE SODIUM

REACTIONS (9)
  - Feeding disorder [Not Recovered/Not Resolved]
  - Constipation [None]
  - Diarrhoea [Not Recovered/Not Resolved]
  - Nausea [Not Recovered/Not Resolved]
  - Poisoning [None]
  - Abdominal distension [Not Recovered/Not Resolved]
  - Drug hypersensitivity [None]
  - Vomiting [Not Recovered/Not Resolved]
  - Dysgeusia [None]

NARRATIVE: CASE EVENT DATE: 20160527
